FAERS Safety Report 13156796 (Version 3)
Quarter: 2017Q2

REPORT INFORMATION
  Report Type: Report from Study
  Country: NL (occurrence: NL)
  Receive Date: 20170126
  Receipt Date: 20170518
  Transmission Date: 20170830
  Serious: Yes (Hospitalization)
  Sender: FDA-Public Use
  Company Number: NL-AMGEN-NLDSL2017011728

PATIENT
  Age: 82 Year
  Sex: Female

DRUGS (5)
  1. XGEVA [Suspect]
     Active Substance: DENOSUMAB
     Indication: PROPHYLAXIS
     Dosage: 120 MG IN 1.70 ML, Q4WK
     Route: 058
  2. XGEVA [Suspect]
     Active Substance: DENOSUMAB
     Dosage: 120 MG IN 1.70 ML, Q4WK
     Route: 058
  3. XGEVA [Suspect]
     Active Substance: DENOSUMAB
     Dosage: 120 MG IN 1.70 ML, Q4WK
     Route: 058
  4. XGEVA [Suspect]
     Active Substance: DENOSUMAB
     Dosage: 120 MG IN 1.70 ML, Q4WK
     Route: 058
  5. XGEVA [Suspect]
     Active Substance: DENOSUMAB
     Dosage: 120 MG IN 1.70 ML, Q4WK
     Route: 058

REACTIONS (6)
  - Pain [Unknown]
  - Cystitis [Recovered/Resolved]
  - Back pain [Not Recovered/Not Resolved]
  - Pyrexia [Unknown]
  - Cerebral infarction [Recovered/Resolved with Sequelae]
  - Asthenia [Recovered/Resolved with Sequelae]

NARRATIVE: CASE EVENT DATE: 20170201
